FAERS Safety Report 4962321-3 (Version None)
Quarter: 2006Q2

REPORT INFORMATION
  Report Type: 
  Country: None (occurrence: None)
  Receive Date: 20060404
  Receipt Date: 20050819
  Transmission Date: 20061013
  Serious: Yes (Other)
  Sender: FDA-Public Use
  Company Number: US-AMGEN-US147294

PATIENT
  Sex: Female
  Weight: 56 kg

DRUGS (5)
  1. PROCRIT [Suspect]
     Indication: ANAEMIA
     Route: 058
     Dates: start: 20050420, end: 20050420
  2. TPN [Concomitant]
     Route: 042
     Dates: start: 20050419, end: 20050423
  3. DEXAMETHASONE TAB [Concomitant]
     Route: 042
     Dates: start: 20050419, end: 20050422
  4. PHENERGAN HCL [Concomitant]
     Route: 042
     Dates: start: 20050419, end: 20050420
  5. NIFEREX [Concomitant]
     Route: 048
     Dates: start: 20050516

REACTIONS (1)
  - ANTI-ERYTHROPOIETIN ANTIBODY POSITIVE [None]
